FAERS Safety Report 4489386-X (Version None)
Quarter: 2004Q4

REPORT INFORMATION
  Report Type: 
  Country: None (occurrence: None)
  Receive Date: 20041025
  Receipt Date: 20041020
  Transmission Date: 20050328
  Serious: Yes (Death, Hospitalization, Other)
  Sender: FDA-Public Use
  Company Number: KII-2004-0012579

PATIENT
  Age: 44 Year
  Sex: Female

DRUGS (9)
  1. OXYCONTIN [Suspect]
     Dosage: ORAL
     Route: 048
  2. BENZODIAZEPINE (DERIVATIVES) [Suspect]
     Dosage: ORAL
     Route: 048
  3. METHADONE (METHADONE) [Suspect]
     Dosage: ORAL
     Route: 048
  4. ACETAMINOPHEN [Suspect]
     Dosage: ORAL
     Route: 048
  5. (ANTIEPILEPTICS) [Suspect]
     Dosage: ORAL
     Route: 048
  6. ASPIRIN [Suspect]
  7. ETHANOL (ETHANOL) [Suspect]
  8. WARFARIN SODIUM [Concomitant]
  9. FUROSEMIDE [Concomitant]

REACTIONS (32)
  - ABNORMAL CHEST SOUND [None]
  - AGITATION [None]
  - ALANINE AMINOTRANSFERASE INCREASED [None]
  - ASPARTATE AMINOTRANSFERASE INCREASED [None]
  - ASPIRATION [None]
  - BLOOD CALCIUM DECREASED [None]
  - BLOOD CHLORIDE INCREASED [None]
  - BLOOD CREATINE PHOSPHOKINASE INCREASED [None]
  - BLOOD CREATINE PHOSPHOKINASE MB INCREASED [None]
  - BLOOD CREATININE INCREASED [None]
  - BLOOD LACTIC ACID INCREASED [None]
  - BLOOD POTASSIUM DECREASED [None]
  - BLOOD UREA INCREASED [None]
  - CHEMICAL POISONING [None]
  - COMA [None]
  - DIALYSIS [None]
  - DIARRHOEA [None]
  - ELECTROCARDIOGRAM ST SEGMENT ELEVATION [None]
  - HEART RATE INCREASED [None]
  - HEPATIC TRAUMA [None]
  - HYPOTENSION [None]
  - INCREASED BRONCHIAL SECRETION [None]
  - INTENTIONAL OVERDOSE [None]
  - METABOLIC ACIDOSIS [None]
  - MIOSIS [None]
  - MYOCARDIAL INFARCTION [None]
  - OXYGEN SATURATION DECREASED [None]
  - PCO2 INCREASED [None]
  - PO2 DECREASED [None]
  - RESPIRATORY RATE INCREASED [None]
  - RHONCHI [None]
  - URINE OUTPUT DECREASED [None]
